FAERS Safety Report 4508451-1 (Version None)
Quarter: 2004Q4

REPORT INFORMATION
  Report Type: 
  Country: None (occurrence: None)
  Receive Date: 20041123
  Receipt Date: 20040218
  Transmission Date: 20050328
  Serious: No
  Sender: FDA-Public Use
  Company Number: US-GLAXOSMITHKLINE-A0498750A

PATIENT
  Age: 71 Year
  Sex: Female

DRUGS (2)
  1. WELLBUTRIN SR [Suspect]
     Indication: ILL-DEFINED DISORDER
     Route: 048
     Dates: start: 20030601, end: 20040101
  2. CHEMOTHERAPY [Concomitant]

REACTIONS (1)
  - RASH [None]
